FAERS Safety Report 19935105 (Version 1)
Quarter: 2021Q4

REPORT INFORMATION
  Report Type: Spontaneous
  Country: US (occurrence: US)
  Receive Date: 20211008
  Receipt Date: 20211008
  Transmission Date: 20220303
  Serious: No
  Sender: FDA-Public Use
  Company Number: US-SA-SAC20211002000064

PATIENT
  Age: 29 Year
  Sex: Male

DRUGS (1)
  1. FABRAZYME [Suspect]
     Active Substance: AGALSIDASE BETA
     Dosage: UNK
     Route: 041

REACTIONS (2)
  - Neutralising antibodies positive [Unknown]
  - Globotriaosylceramide increased [Unknown]

NARRATIVE: CASE EVENT DATE: 20210913
